FAERS Safety Report 5897164-X (Version None)
Quarter: 2008Q3

REPORT INFORMATION
  Report Type: 
  Country: None (occurrence: None)
  Receive Date: 20080923
  Receipt Date: 20080911
  Transmission Date: 20090109
  Serious: Yes (Hospitalization)
  Sender: FDA-Public Use
  Company Number: 2008-03360

PATIENT
  Age: 68 Year
  Sex: Male

DRUGS (11)
  1. VELCADE [Suspect]
     Indication: MANTLE CELL LYMPHOMA
  2. RITUXAN [Suspect]
     Indication: MANTLE CELL LYMPHOMA
  3. CARMUSTINE [Suspect]
     Indication: MANTLE CELL LYMPHOMA
  4. ETOPOSIDE [Suspect]
     Indication: MANTLE CELL LYMPHOMA
  5. CYTARABINE [Suspect]
     Indication: MANTLE CELL LYMPHOMA
  6. MELPHALAN(MELPHALAN) VIAL [Suspect]
     Indication: MANTLE CELL LYMPHOMA
  7. ACETAMINOPHEN [Concomitant]
  8. POTASSIUM (POTASSIUM) [Concomitant]
  9. MAGNESIUM (MAGNESIUM) [Concomitant]
  10. AMITRIPTYLINE HYDROCHLORIDE [Concomitant]
  11. ANDRODERM [Concomitant]

REACTIONS (3)
  - CARDIAC ENZYMES INCREASED [None]
  - FALL [None]
  - MUSCULAR WEAKNESS [None]
